FAERS Safety Report 10551287 (Version 7)
Quarter: 2016Q3

REPORT INFORMATION
  Report Type: Report from Study
  Country: BR (occurrence: BR)
  Receive Date: 20141029
  Receipt Date: 20160818
  Transmission Date: 20161109
  Serious: Yes (Hospitalization, Other)
  Sender: FDA-Public Use
  Company Number: PHHY2014BR140438

PATIENT
  Age: 48 Year
  Sex: Female
  Weight: 59 kg

DRUGS (7)
  1. CALCIUM BICARBONATE [Concomitant]
     Active Substance: CALCIUM BICARBONATE
     Indication: OSTEOPOROSIS
     Dosage: 6 DF, QD
     Route: 065
     Dates: start: 2006
  2. CALCIUM BICARBONATE [Concomitant]
     Active Substance: CALCIUM BICARBONATE
     Dosage: 1 DF, QD
     Route: 065
  3. NORTRIPTYLINE [Concomitant]
     Active Substance: NORTRIPTYLINE
     Indication: PRODUCT USED FOR UNKNOWN INDICATION
     Dosage: 1 DF, QD
     Route: 065
     Dates: start: 2006
  4. CALCITRIOL. [Concomitant]
     Active Substance: CALCITRIOL
     Indication: HYPOTHYROIDISM
     Dosage: 1 DF, QD
     Route: 065
  5. CALCITRIOL. [Concomitant]
     Active Substance: CALCITRIOL
     Indication: OSTEOPOROSIS
     Dosage: 2 DF, QD
     Route: 065
     Dates: start: 2006
  6. SANDOSTATIN LAR DEPOT [Suspect]
     Active Substance: OCTREOTIDE ACETATE
     Indication: NEUROENDOCRINE TUMOUR
     Dosage: 30 MG, QMO, EVERY 28 DAYS
     Route: 030
     Dates: start: 2007
  7. PANTOPRAZOLE [Concomitant]
     Active Substance: PANTOPRAZOLE SODIUM
     Indication: HYPERCHLORHYDRIA
     Dosage: 2 DF, QD
     Route: 065
     Dates: start: 2006

REACTIONS (14)
  - Nephrolithiasis [Recovering/Resolving]
  - Dysentery [Not Recovered/Not Resolved]
  - Back pain [Not Recovered/Not Resolved]
  - Pancreatic neoplasm [Unknown]
  - Pain [Not Recovered/Not Resolved]
  - Parathyroid disorder [Recovering/Resolving]
  - Weight decreased [Recovering/Resolving]
  - Breast cancer [Unknown]
  - Breast induration [Unknown]
  - Hepatic neoplasm [Unknown]
  - Abdominal pain [Not Recovered/Not Resolved]
  - Asthenia [Recovering/Resolving]
  - Breast pain [Unknown]
  - Second primary malignancy [Unknown]

NARRATIVE: CASE EVENT DATE: 201510
